FAERS Safety Report 7309093-5 (Version None)
Quarter: 2011Q1

REPORT INFORMATION
  Report Type: 
  Country: None (occurrence: None)
  Receive Date: 20110223
  Receipt Date: 20110218
  Transmission Date: 20110831
  Serious: Yes (Hospitalization)
  Sender: FDA-Public Use
  Company Number: BR-ABBOTT-11P-020-0706590-00

PATIENT
  Sex: Female
  Weight: 7.7 kg

DRUGS (7)
  1. DEPAKOTE [Interacting]
     Indication: CONVULSION
     Dosage: 2 CAPSULES PER DAY
     Route: 048
  2. ANOTHER EPILEPSY MEDICATION [Interacting]
     Indication: EPILEPSY
  3. CLONAZEPINE [Concomitant]
     Indication: EPILEPSY
     Route: 048
  4. DEPAKOTE [Suspect]
     Indication: EPILEPSY
     Route: 048
     Dates: start: 20100801
  5. LAMOTRIGINE [Concomitant]
     Indication: EPILEPSY
     Dosage: 1/2 TABLET IN THE MORNING AND 3/4 AT NIGHT
     Route: 048
     Dates: start: 20101101
  6. DEPAKOTE [Interacting]
     Dosage: 4 CAPSULES PER DAY
     Route: 048
  7. DEPAKOTE [Interacting]
     Dosage: 2 CAPSULE PER DAY
     Route: 048

REACTIONS (7)
  - NYSTAGMUS [None]
  - PLATELET COUNT DECREASED [None]
  - ASTHENIA [None]
  - DRUG INEFFECTIVE [None]
  - HYPERSOMNIA [None]
  - EYE MOVEMENT DISORDER [None]
  - DRUG INTERACTION [None]
